FAERS Safety Report 14804390 (Version 1)
Quarter: 2018Q2

REPORT INFORMATION
  Report Type: Spontaneous
  Country: BE (occurrence: BE)
  Receive Date: 20180425
  Receipt Date: 20180425
  Transmission Date: 20180711
  Serious: Yes (Hospitalization)
  Sender: FDA-Public Use
  Company Number: PHHY2018BE071224

PATIENT
  Age: 54 Year
  Sex: Male

DRUGS (7)
  1. GLUCOSE [Concomitant]
     Active Substance: DEXTROSE
     Indication: PRODUCT USED FOR UNKNOWN INDICATION
     Dosage: 2-5ML
     Route: 065
  2. BETAMETHASONE. [Suspect]
     Active Substance: BETAMETHASONE
     Indication: JOINT SWELLING
     Dosage: RECEIVED FIVE INTRA-ARTICULAR BETAMETHASONE INJECTIONS WITH A TWO WEEK INTERVAL
     Route: 014
  3. CIPROFLOXACIN. [Concomitant]
     Active Substance: CIPROFLOXACIN
     Indication: ANTIBIOTIC THERAPY
     Route: 065
  4. GLUCOSE [Concomitant]
     Active Substance: DEXTROSE
     Dosage: 1 ML (TEST DOSE)
  5. AMPHOTERICIN B. [Suspect]
     Active Substance: AMPHOTERICIN B
     Indication: INFECTION
     Dosage: 1MG DISSOLVED IN 1ML OF GLUCOSE 5% SOLUTION (TEST DOSE AT DAY +37)
     Route: 014
  6. AMPHOTERICIN B. [Suspect]
     Active Substance: AMPHOTERICIN B
     Dosage: SIX WEEKLY INJECTIONS OF 5MG, DISSOLVED IN 2-5ML OF GLUCOSE 5% SOLUTION
     Route: 013
  7. CLINDAMYCIN. [Concomitant]
     Active Substance: CLINDAMYCIN
     Indication: ANTIBIOTIC THERAPY
     Route: 065

REACTIONS (4)
  - Opportunistic infection [Recovered/Resolved]
  - Chills [Unknown]
  - Nausea [Unknown]
  - Bursitis [Recovered/Resolved]
